FAERS Safety Report 25574483 (Version 1)
Quarter: 2025Q3

REPORT INFORMATION
  Report Type: Spontaneous
  Country: US (occurrence: US)
  Receive Date: 20250717
  Receipt Date: 20250717
  Transmission Date: 20251021
  Serious: Yes (Other)
  Sender: Norvium Bioscience
  Company Number: US-Norvium Bioscience LLC-080418

PATIENT

DRUGS (1)
  1. CLONAZEPAM [Suspect]
     Active Substance: CLONAZEPAM
     Indication: Product used for unknown indication
     Dosage: OVER PRESCRIBED

REACTIONS (3)
  - Coma [Unknown]
  - Product prescribing error [Unknown]
  - Cerebral disorder [Unknown]
